FAERS Safety Report 8270197-4 (Version None)
Quarter: 2012Q2

REPORT INFORMATION
  Report Type: 
  Country: None (occurrence: None)
  Receive Date: 20120410
  Receipt Date: 20120402
  Transmission Date: 20120825
  Serious: Yes (Hospitalization)
  Sender: FDA-Public Use
  Company Number: FR-B.I. PHARMACEUTICALS,INC./RIDGEFIELD-2012-FF-00308FF

PATIENT
  Sex: Female
  Weight: 65 kg

DRUGS (3)
  1. PRADAXA [Suspect]
     Indication: KNEE ARTHROPLASTY
     Dosage: 220 MG
     Route: 048
     Dates: start: 20120124, end: 20120126
  2. LOVENOX [Concomitant]
     Dosage: 4000 U
     Route: 058
     Dates: start: 20120123
  3. ACETAMINOPHEN [Concomitant]
     Dosage: 4 G
     Route: 048
     Dates: start: 20110122

REACTIONS (1)
  - DEEP VEIN THROMBOSIS [None]
